FAERS Safety Report 5468268-0 (Version None)
Quarter: 2007Q3

REPORT INFORMATION
  Report Type: 
  Country: None (occurrence: None)
  Receive Date: 20070926
  Receipt Date: 20070921
  Transmission Date: 20080115
  Serious: Yes (Hospitalization)
  Sender: FDA-Public Use
  Company Number: FR-AVENTIS-200713007FR

PATIENT
  Age: 52 Year
  Sex: Male

DRUGS (7)
  1. LASIX [Suspect]
     Indication: NEPHROTIC SYNDROME
     Route: 048
  2. RAMIPRIL [Suspect]
     Indication: NEPHROTIC SYNDROME
     Route: 048
  3. THALIDOMIDE [Suspect]
     Route: 048
  4. ALDACTONE [Suspect]
     Indication: NEPHROTIC SYNDROME
     Route: 048
  5. ALKERAN [Concomitant]
     Route: 048
  6. DEXAMETHASONE 0.5MG TAB [Concomitant]
     Route: 048
  7. PREVISCAN                          /00789001/ [Concomitant]
     Route: 048
     Dates: end: 20070201

REACTIONS (2)
  - PHLEBITIS [None]
  - PULMONARY EMBOLISM [None]
